FAERS Safety Report 5149098-6 (Version None)
Quarter: 2006Q4

REPORT INFORMATION
  Report Type: 
  Country: None (occurrence: None)
  Receive Date: 20061113
  Receipt Date: 20060720
  Transmission Date: 20070319
  Serious: No
  Sender: FDA-Public Use
  Company Number: US-GLAXOSMITHKLINE-A0613015A

PATIENT
  Age: 56 Year
  Sex: Female

DRUGS (7)
  1. COREG [Suspect]
     Indication: HYPERTENSION
     Dosage: 25MG TWICE PER DAY
     Route: 048
     Dates: start: 20060401
  2. CARDIZEM [Concomitant]
  3. HYZAAR [Concomitant]
  4. FORTAMET [Concomitant]
  5. ZYRTEC [Concomitant]
  6. PREVACID [Concomitant]
  7. ASTELIN [Concomitant]

REACTIONS (2)
  - DRUG INEFFECTIVE [None]
  - WEIGHT INCREASED [None]
